FAERS Safety Report 17988340 (Version 1)
Quarter: 2020Q3

REPORT INFORMATION
  Report Type: Spontaneous
  Country: US (occurrence: US)
  Receive Date: 20200707
  Receipt Date: 20200707
  Transmission Date: 20201103
  Serious: No
  Sender: FDA-Public Use
  Company Number: US-BION-008472

PATIENT
  Sex: Female

DRUGS (5)
  1. PROPRANOLOL [Concomitant]
     Active Substance: PROPRANOLOL HYDROCHLORIDE
     Dosage: STRENGTH 80 MG BID
  2. BUPROPION/BUPROPION HYDROCHLORIDE [Concomitant]
     Active Substance: BUPROPION HYDROCHLORIDE
     Dosage: STRENGTH 150 MG BID
  3. HYDROXYZINE [Concomitant]
     Active Substance: HYDROXYZINE HYDROCHLORIDE
     Dosage: STRENGTH 35 MG TID
  4. BIONPHARMA^S AMANTADINE HYDROCHLORIDE CAPSULES UNKNOWN [Suspect]
     Active Substance: AMANTADINE HYDROCHLORIDE
     Indication: MIGRAINE
     Dosage: STRENGTH 100 MG
  5. AMITRIPTYLINE [Concomitant]
     Active Substance: AMITRIPTYLINE
     Dosage: STRENGTH 75 MG, 3 TABS HS

REACTIONS (4)
  - Anxiety [Not Recovered/Not Resolved]
  - Product use in unapproved indication [Not Recovered/Not Resolved]
  - Livedo reticularis [Not Recovered/Not Resolved]
  - Irritability [Not Recovered/Not Resolved]
